FAERS Safety Report 8231003-7 (Version None)
Quarter: 2012Q1

REPORT INFORMATION
  Report Type: 
  Country: None (occurrence: None)
  Receive Date: 20120323
  Receipt Date: 20120315
  Transmission Date: 20120608
  Serious: Yes (Hospitalization)
  Sender: FDA-Public Use
  Company Number: FR-GE HEALTHCARE MEDICAL DIAGNOSTICS-OMPQ-NO-1203S-0327

PATIENT
  Sex: Male

DRUGS (5)
  1. CALCIUM , CHLORIDE, GLUCOSE MONOHYDRATE, POTASSIUM, SODIUM (POLYIONIQU [Suspect]
     Route: 042
     Dates: start: 20120227, end: 20120301
  2. SODIUM CHLORIDE [Suspect]
     Route: 042
     Dates: start: 20120227, end: 20120301
  3. OMNIPAQUE 140 [Suspect]
     Indication: PRODUCT USED FOR UNKNOWN INDICATION
     Route: 042
     Dates: start: 20120301, end: 20120301
  4. CLAFORAN [Concomitant]
  5. VANCOMYCIN [Concomitant]

REACTIONS (3)
  - INJECTION SITE OEDEMA [None]
  - EXTRAVASATION [None]
  - INJECTION SITE ERYTHEMA [None]
